FAERS Safety Report 10609817 (Version 3)
Quarter: 2020Q2

REPORT INFORMATION
  Report Type: Report from Study
  Country: US (occurrence: US)
  Receive Date: 20141126
  Receipt Date: 20200413
  Transmission Date: 20200713
  Serious: Yes (Hospitalization, Other)
  Sender: FDA-Public Use
  Company Number: US-SA-2014SA159793

PATIENT
  Age: 57 Year
  Sex: Male
  Weight: 120 kg

DRUGS (2)
  1. AGALSIDASE BETA [Suspect]
     Active Substance: AGALSIDASE BETA
     Indication: FABRY^S DISEASE
     Dosage: 1 MG/KG,QOW
     Route: 042
     Dates: start: 20040217
  2. LIPITOR [Concomitant]
     Active Substance: ATORVASTATIN CALCIUM
     Dosage: UNK

REACTIONS (13)
  - Cerebrovascular accident [Recovering/Resolving]
  - Paraesthesia [Unknown]
  - Pain in extremity [Recovered/Resolved]
  - Migraine [Not Recovered/Not Resolved]
  - Fatigue [Unknown]
  - Paraesthesia oral [Unknown]
  - Headache [Not Recovered/Not Resolved]
  - Monoplegia [Unknown]
  - Hypoaesthesia [Recovered/Resolved]
  - Tooth disorder [Unknown]
  - Hypoaesthesia [Recovering/Resolving]
  - Transient ischaemic attack [Recovering/Resolving]
  - Memory impairment [Recovering/Resolving]

NARRATIVE: CASE EVENT DATE: 2014
